FAERS Safety Report 24606163 (Version 1)
Quarter: 2024Q4

REPORT INFORMATION
  Report Type: Spontaneous
  Country: US (occurrence: US)
  Receive Date: 20241112
  Receipt Date: 20241112
  Transmission Date: 20250115
  Serious: Yes (Other)
  Sender: NOVO NORDISK
  Company Number: US-NOVOPROD-1313100

PATIENT
  Sex: Female
  Weight: 133.79 kg

DRUGS (2)
  1. WEGOVY [Suspect]
     Active Substance: SEMAGLUTIDE
     Dosage: 1.7MG
     Dates: start: 202401
  2. WEGOVY [Suspect]
     Active Substance: SEMAGLUTIDE
     Indication: Obesity
     Dosage: UNK
     Route: 058
     Dates: start: 202307

REACTIONS (2)
  - Colon cancer [Not Recovered/Not Resolved]
  - Helicobacter test positive [Unknown]

NARRATIVE: CASE EVENT DATE: 20240723
